FAERS Safety Report 8231196-1 (Version None)
Quarter: 2012Q1

REPORT INFORMATION
  Report Type: 
  Country: None (occurrence: None)
  Receive Date: 20120323
  Receipt Date: 20120323
  Transmission Date: 20120608
  Serious: No
  Sender: FDA-Public Use
  Company Number: None

PATIENT
  Age: 37 Year
  Sex: Female
  Weight: 61.234 kg

DRUGS (1)
  1. CHILDREN'S TYLENOL PLUS MULTI-SYMPTOM COLD [Suspect]
     Dosage: 2 TSP OR 10 ML
     Route: 048
     Dates: start: 20120321, end: 20120321

REACTIONS (2)
  - NAUSEA [None]
  - DIZZINESS [None]
